FAERS Safety Report 8489569-8 (Version None)
Quarter: 2012Q3

REPORT INFORMATION
  Report Type: 
  Country: None (occurrence: None)
  Receive Date: 20120705
  Receipt Date: 20120626
  Transmission Date: 20120928
  Serious: Yes (Other)
  Sender: FDA-Public Use
  Company Number: US-JNJFOC-20120613190

PATIENT
  Sex: Female

DRUGS (2)
  1. ANESTHETIC [Suspect]
     Indication: ANORECTAL OPERATION
     Route: 065
     Dates: start: 20120501
  2. REMICADE [Suspect]
     Indication: COLITIS ULCERATIVE
     Route: 042

REACTIONS (3)
  - ANORECTAL OPERATION [None]
  - AGEUSIA [None]
  - DECREASED APPETITE [None]
